FAERS Safety Report 7621971-6 (Version None)
Quarter: 2011Q3

REPORT INFORMATION
  Report Type: 
  Country: None (occurrence: None)
  Receive Date: 20110720
  Receipt Date: 20110418
  Transmission Date: 20111222
  Serious: Yes (Hospitalization)
  Sender: FDA-Public Use
  Company Number: IT-BAYER-2011-033274

PATIENT
  Age: 36 Year
  Sex: Male

DRUGS (2)
  1. AULIN [Concomitant]
     Indication: TOOTHACHE
     Dosage: UNK
     Dates: start: 20110331, end: 20110331
  2. NAPROXEN SODIUM [Suspect]
     Indication: TOOTHACHE
     Dosage: 550 MG, UNK
     Route: 048
     Dates: start: 20110331, end: 20110331

REACTIONS (4)
  - THROAT TIGHTNESS [None]
  - PRURITUS GENERALISED [None]
  - DYSPNOEA [None]
  - URTICARIA [None]
